FAERS Safety Report 23308139 (Version 1)
Quarter: 2023Q4

REPORT INFORMATION
  Report Type: Spontaneous
  Country: ES (occurrence: ES)
  Receive Date: 20231218
  Receipt Date: 20231218
  Transmission Date: 20240110
  Serious: Yes (Death, Other)
  Sender: FDA-Public Use
  Company Number: ES-AMGEN-ESPSP2023225142

PATIENT

DRUGS (5)
  1. APREMILAST [Suspect]
     Active Substance: APREMILAST
     Indication: Psoriasis
     Dosage: UNK
     Route: 065
  2. ADALIMUMAB [Suspect]
     Active Substance: ADALIMUMAB\ISOPROPYL ALCOHOL
     Indication: Psoriasis
     Dosage: UNK
     Route: 065
  3. TILDRAKIZUMAB-ASMN [Suspect]
     Active Substance: TILDRAKIZUMAB-ASMN
     Indication: Psoriasis
     Dosage: UNK
     Route: 065
  4. USTEKINUMAB [Concomitant]
     Active Substance: USTEKINUMAB
  5. IXEKIZUMAB [Concomitant]
     Active Substance: IXEKIZUMAB
     Dosage: UNK

REACTIONS (10)
  - Death [Fatal]
  - Cellulitis [Unknown]
  - Ill-defined disorder [Unknown]
  - Overweight [Unknown]
  - Urinary tract infection [Unknown]
  - Herpes zoster [Unknown]
  - Arthritis [Unknown]
  - Weight decreased [Unknown]
  - Migraine [Unknown]
  - Anxiety [Unknown]
